FAERS Safety Report 6114487-X (Version None)
Quarter: 2009Q1

REPORT INFORMATION
  Report Type: 
  Country: None (occurrence: None)
  Receive Date: 20090313
  Receipt Date: 20090305
  Transmission Date: 20090719
  Serious: Yes (Hospitalization, Other)
  Sender: FDA-Public Use
  Company Number: US-PURDUE-USA_2009_0037322

PATIENT
  Sex: Male

DRUGS (1)
  1. DILAUDID [Suspect]
     Indication: DRUG USE FOR UNKNOWN INDICATION
     Dosage: UNK MG, SEE TEXT
     Route: 048

REACTIONS (3)
  - HOSPITALISATION [None]
  - INTENTIONAL OVERDOSE [None]
  - SELF INJURIOUS BEHAVIOUR [None]
